FAERS Safety Report 10444838 (Version 2)
Quarter: 2014Q4

REPORT INFORMATION
  Report Type: Spontaneous
  Country: IT (occurrence: IT)
  Receive Date: 20140910
  Receipt Date: 20141117
  Transmission Date: 20150528
  Serious: Yes (Other)
  Sender: FDA-Public Use
  Company Number: IT-TEVA-507220ISR

PATIENT
  Age: 83 Year
  Sex: Female

DRUGS (5)
  1. AZILECT [Suspect]
     Active Substance: RASAGILINE MESYLATE
     Indication: PARKINSON^S DISEASE
     Dosage: 1 DOSAGE FORMS DAILY;
     Route: 048
     Dates: start: 20140715, end: 20140828
  2. ANTRA 20 MG [Concomitant]
     Dosage: GASTRO RESISTANT HARD CAPSULE
  3. CIPRALEX [Concomitant]
     Active Substance: ESCITALOPRAM OXALATE
  4. MADOPAR 200 MG + 50 MG [Concomitant]
     Dosage: DIVISIBLE TABLET,LEVODOPA 200MG +BENSERAZIDE 50MG
  5. PLAVIX [Concomitant]
     Active Substance: CLOPIDOGREL BISULFATE

REACTIONS (5)
  - Somnolence [Unknown]
  - Blister [Unknown]
  - Altered state of consciousness [Unknown]
  - Hyporesponsive to stimuli [Unknown]
  - Disturbance in attention [Unknown]

NARRATIVE: CASE EVENT DATE: 20140802
